FAERS Safety Report 12313664 (Version 1)
Quarter: 2016Q2

REPORT INFORMATION
  Report Type: Spontaneous
  Country: US (occurrence: US)
  Receive Date: 20160428
  Receipt Date: 20160428
  Transmission Date: 20160815
  Serious: Yes (Other)
  Sender: FDA-Public Use
  Company Number: US-WARNER CHILCOTT, LLC-1051134

PATIENT
  Age: 77 Year
  Sex: Female

DRUGS (1)
  1. ACTONEL [Suspect]
     Active Substance: RISEDRONATE SODIUM
     Indication: BONE DISORDER
     Route: 048

REACTIONS (5)
  - Osteonecrosis of jaw [Not Recovered/Not Resolved]
  - Inflammation [Not Recovered/Not Resolved]
  - Tooth impacted [Not Recovered/Not Resolved]
  - Exposed bone in jaw [Not Recovered/Not Resolved]
  - Infection [Not Recovered/Not Resolved]
